FAERS Safety Report 13577817 (Version 34)
Quarter: 2019Q4

REPORT INFORMATION
  Report Type: Report from Study
  Country: CA (occurrence: CA)
  Receive Date: 20170524
  Receipt Date: 20191004
  Transmission Date: 20200122
  Serious: Yes (Hospitalization, Disabling, Other)
  Sender: FDA-Public Use
  Company Number: CA-SA-2017SA067125

PATIENT
  Age: 30 Year
  Sex: Female

DRUGS (10)
  1. GRAVOL [Concomitant]
     Active Substance: DIMENHYDRINATE
     Indication: PREMEDICATION
     Dosage: 50 MG,UNK
     Route: 048
     Dates: start: 20170410, end: 20170412
  2. TYLENOL [Concomitant]
     Active Substance: ACETAMINOPHEN
     Indication: PREMEDICATION
     Dosage: 650 MG,PRN
     Route: 048
     Dates: start: 20170410
  3. ACICLOVIR [Concomitant]
     Active Substance: ACYCLOVIR
     Indication: PREMEDICATION
     Dosage: 200 MG,BID
     Route: 048
     Dates: start: 20170410
  4. BENADRYL [Concomitant]
     Active Substance: DIPHENHYDRAMINE HYDROCHLORIDE
     Indication: PREMEDICATION
     Dosage: 25-50 MG,PRN
     Route: 065
     Dates: start: 20170410
  5. MIRENA [Concomitant]
     Active Substance: LEVONORGESTREL
     Indication: CONTRACEPTION
     Dosage: UNK
     Dates: start: 2018
  6. RANITIDINE. [Concomitant]
     Active Substance: RANITIDINE
     Indication: PREMEDICATION
     Dosage: 150 MG,UNK
     Route: 048
     Dates: start: 20170410, end: 20170412
  7. ALEMTUZUMAB [Suspect]
     Active Substance: ALEMTUZUMAB
     Indication: RELAPSING-REMITTING MULTIPLE SCLEROSIS
     Dosage: 12 MG,QD
     Route: 041
     Dates: start: 20170410, end: 20170412
  8. ERGOCALCIFEROL. [Concomitant]
     Active Substance: ERGOCALCIFEROL
     Indication: RELAPSING-REMITTING MULTIPLE SCLEROSIS
     Dosage: 5000 IU,QD
     Route: 048
  9. DEPO-PROVERA [Concomitant]
     Active Substance: MEDROXYPROGESTERONE ACETATE
     Indication: CONTRACEPTION
     Dosage: UNK UNK,UNK
  10. METHYLPREDNISOLONE. [Concomitant]
     Active Substance: METHYLPREDNISOLONE
     Indication: PREMEDICATION
     Dosage: 1 G,UNK
     Route: 042
     Dates: start: 20170410, end: 20170412

REACTIONS (58)
  - Fatigue [Unknown]
  - Decreased appetite [Not Recovered/Not Resolved]
  - Pollakiuria [Recovering/Resolving]
  - Thyroxine free increased [Recovered/Resolved]
  - Thyroxine free decreased [Recovered/Resolved]
  - Lymphocyte count decreased [Recovered/Resolved]
  - Protein urine present [Recovered/Resolved]
  - Basedow^s disease [Recovered/Resolved]
  - Urine abnormality [Recovered/Resolved]
  - Wheelchair user [Recovered/Resolved]
  - Influenza [Recovered/Resolved]
  - Mean cell volume decreased [Recovered/Resolved]
  - Bacterial test positive [Not Recovered/Not Resolved]
  - Urine leukocyte esterase positive [Recovered/Resolved]
  - Body temperature increased [Recovered/Resolved]
  - Urinary tract infection [Recovered/Resolved]
  - Muscular weakness [Not Recovered/Not Resolved]
  - Rash erythematous [Recovering/Resolving]
  - Leukopenia [Recovered/Resolved]
  - Pollakiuria [Recovered/Resolved]
  - Blood thyroid stimulating hormone increased [Recovered/Resolved]
  - Erythema [Recovered/Resolved]
  - Fatigue [Recovered/Resolved]
  - Rash [Recovered/Resolved]
  - Ear pain [Recovered/Resolved]
  - Hypoacusis [Recovered/Resolved]
  - Red blood cell count decreased [Recovered/Resolved]
  - Muscular weakness [Unknown]
  - Urine analysis abnormal [Not Recovered/Not Resolved]
  - Mean cell haemoglobin decreased [Recovered/Resolved]
  - Tri-iodothyronine free decreased [Not Recovered/Not Resolved]
  - Urine ketone body present [Recovered/Resolved]
  - Blood thyroid stimulating hormone decreased [Recovered/Resolved]
  - Hyperhidrosis [Unknown]
  - Temperature intolerance [Unknown]
  - Mobility decreased [Recovering/Resolving]
  - Urinary sediment present [Recovered/Resolved]
  - Red cell distribution width increased [Recovered/Resolved]
  - Crystal urine present [Not Recovered/Not Resolved]
  - White blood cells urine positive [Recovered/Resolved]
  - Tachycardia [Recovered/Resolved]
  - Urticaria [Recovered/Resolved]
  - Neutropenia [Recovered/Resolved]
  - Weight increased [Recovered/Resolved]
  - Colposcopy [Unknown]
  - Autoimmune thyroiditis [Unknown]
  - Tremor [Unknown]
  - Balance disorder [Recovering/Resolving]
  - Tremor [Recovered/Resolved]
  - Feeling hot [Recovered/Resolved]
  - Human papilloma virus test positive [Recovered/Resolved]
  - Blood urine present [Recovered/Resolved]
  - Red blood cells urine positive [Recovered/Resolved]
  - Pruritus [Recovered/Resolved]
  - Mobility decreased [Recovered/Resolved]
  - Anti-thyroid antibody [Unknown]
  - Rash pruritic [Recovered/Resolved]
  - Fatigue [Not Recovered/Not Resolved]

NARRATIVE: CASE EVENT DATE: 20170410
